FAERS Safety Report 20461292 (Version 2)
Quarter: 2022Q1

REPORT INFORMATION
  Report Type: Spontaneous
  Country: AU (occurrence: AU)
  Receive Date: 20220211
  Receipt Date: 20220216
  Transmission Date: 20220424
  Serious: Yes (Hospitalization, Other)
  Sender: FDA-Public Use
  Company Number: AU-MYLANLABS-2021M1060794

PATIENT
  Age: 35 Year
  Sex: Female
  Weight: 90 kg

DRUGS (11)
  1. CLOZARIL [Suspect]
     Active Substance: CLOZAPINE
     Indication: Schizophrenia
     Dosage: UNK (11-OCT-2017)
     Route: 048
     Dates: end: 20171026
  2. CLOZARIL [Suspect]
     Active Substance: CLOZAPINE
     Dosage: MAXIMUM DOSE SHE REACHED WAS 175MG
     Dates: start: 201710, end: 201710
  3. ZUCLOPENTHIXOL [Concomitant]
     Active Substance: ZUCLOPENTHIXOL
     Dosage: 200 MILLIGRAM (START DATE: NOV-2012)
     Dates: end: 201607
  4. ZUCLOPENTHIXOL [Concomitant]
     Active Substance: ZUCLOPENTHIXOL
     Dosage: 400 MILLIGRAM
     Dates: start: 201612, end: 201808
  5. ZUCLOPENTHIXOL [Concomitant]
     Active Substance: ZUCLOPENTHIXOL
     Dosage: 400 MILLIGRAM, QW
     Dates: start: 201812, end: 202201
  6. BREXPIPRAZOLE [Concomitant]
     Active Substance: BREXPIPRAZOLE
     Dosage: 4 MILLIGRAM, QD
  7. CLONAZEPAM [Concomitant]
     Active Substance: CLONAZEPAM
     Dosage: 1 MILLIGRAM, BID
  8. THYROXINE [Concomitant]
     Active Substance: LEVOTHYROXINE
     Dosage: 100 MICROGRAM
  9. CHOLECALCIFEROL [Concomitant]
     Active Substance: CHOLECALCIFEROL
     Dosage: 25 MICROGRAM
  10. VALPROATE [Concomitant]
     Active Substance: VALPROIC ACID
     Dosage: 200 MILLIGRAM (START DATE: SEP-2017)
     Dates: end: 201801
  11. HALOPERIDOL [Concomitant]
     Active Substance: HALOPERIDOL
     Dosage: UNK

REACTIONS (13)
  - Pneumonia aspiration [Unknown]
  - Myocarditis [Unknown]
  - Malaise [Not Recovered/Not Resolved]
  - Anion gap decreased [Unknown]
  - Blood alkaline phosphatase increased [Unknown]
  - Blood urea nitrogen/creatinine ratio decreased [Unknown]
  - Influenza like illness [Unknown]
  - Salivary hypersecretion [Unknown]
  - Blood prolactin increased [Unknown]
  - Blood glucose increased [Unknown]
  - Gamma-glutamyltransferase increased [Unknown]
  - Blood lactate dehydrogenase increased [Unknown]
  - Glomerular filtration rate decreased [Unknown]

NARRATIVE: CASE EVENT DATE: 20171001
